FAERS Safety Report 13684874 (Version 3)
Quarter: 2017Q3

REPORT INFORMATION
  Report Type: Report from Study
  Country: US (occurrence: US)
  Receive Date: 20170623
  Receipt Date: 20170714
  Transmission Date: 20171127
  Serious: Yes (Death)
  Sender: FDA-Public Use
  Company Number: US-PFIZER INC-2017271284

PATIENT
  Age: 67 Year
  Sex: Male
  Weight: 96.6 kg

DRUGS (12)
  1. PALBOCICLIB [Suspect]
     Active Substance: PALBOCICLIB
     Indication: BLADDER CANCER
     Dosage: 125 MG ONCE DAILY FOR 21 DAYS, CYCLE OF 28 DAYS
     Route: 048
     Dates: start: 20170510, end: 20170531
  2. SIMVASTATIN. [Concomitant]
     Active Substance: SIMVASTATIN
  3. PAROXETINE. [Concomitant]
     Active Substance: PAROXETINE
  4. OXYCODONE [Concomitant]
     Active Substance: OXYCODONE
  5. METOFORMIN [Concomitant]
     Active Substance: METFORMIN HYDROCHLORIDE
  6. LANSOPRAZOLE. [Concomitant]
     Active Substance: LANSOPRAZOLE
  7. IBUPROFEN. [Concomitant]
     Active Substance: IBUPROFEN
  8. LORAZEPAM. [Concomitant]
     Active Substance: LORAZEPAM
  9. LISINOPRIL-HYDROCHLOROTHIAZIDE [Concomitant]
     Active Substance: HYDROCHLOROTHIAZIDE\LISINOPRIL
  10. VANCOMYCIN [Suspect]
     Active Substance: VANCOMYCIN
     Indication: SEPSIS
     Dosage: UNK
     Dates: start: 20170607, end: 20170609
  11. TOLTERODINE [Concomitant]
     Active Substance: TOLTERODINE
  12. GABAPENTIN. [Concomitant]
     Active Substance: GABAPENTIN

REACTIONS (1)
  - Death [Fatal]

NARRATIVE: CASE EVENT DATE: 20170612
